FAERS Safety Report 9693810 (Version 1)
Quarter: 2013Q4

REPORT INFORMATION
  Report Type: Spontaneous
  Country: US (occurrence: US)
  Receive Date: 20131118
  Receipt Date: 20131118
  Transmission Date: 20140711
  Serious: Yes (Hospitalization, Other)
  Sender: FDA-Public Use
  Company Number: US-BAYER-2013-137082

PATIENT
  Age: 54 Year
  Sex: Female
  Weight: 100 kg

DRUGS (3)
  1. ALEVE CAPLET [Suspect]
     Indication: BACK PAIN
     Dosage: 2 DF, BID
     Route: 048
     Dates: start: 20131025, end: 201310
  2. ALEVE CAPLET [Suspect]
     Indication: BACK PAIN
     Dosage: 4 PILLS A DAY
     Dates: start: 20131026, end: 20131029
  3. TYLENOL [PARACETAMOL] [Concomitant]

REACTIONS (16)
  - Hypersensitivity [None]
  - Arteriospasm coronary [Unknown]
  - Swelling [None]
  - Urticaria [None]
  - Rash [None]
  - Dyspnoea [None]
  - Dizziness [None]
  - Somnolence [None]
  - Blood pressure systolic increased [None]
  - Heart rate increased [None]
  - Extra dose administered [None]
  - Blood pressure decreased [None]
  - Oxygen saturation decreased [None]
  - Heart rate decreased [None]
  - Pruritus generalised [None]
  - Skin reaction [None]
